FAERS Safety Report 9303362 (Version 4)
Quarter: 2013Q3

REPORT INFORMATION
  Report Type: Spontaneous
  Country: JP (occurrence: JP)
  Receive Date: 20130522
  Receipt Date: 20130814
  Transmission Date: 20140515
  Serious: Yes (Hospitalization)
  Sender: FDA-Public Use
  Company Number: JP-TEVA-391870ISR

PATIENT
  Age: 19 Year
  Sex: Male
  Weight: 72 kg

DRUGS (4)
  1. MODIODAL TABLETS 100MG [Suspect]
     Indication: NARCOLEPSY
     Dosage: 200 MILLIGRAM DAILY;
     Route: 048
     Dates: start: 20100511, end: 20120219
  2. MODIODAL TABLETS 100MG [Suspect]
     Indication: SUICIDE ATTEMPT
     Dosage: 300 MILLIGRAM DAILY;
     Route: 048
     Dates: start: 20120220, end: 20120820
  3. MODIODAL TABLETS 100MG [Suspect]
     Dosage: 2000 MILLIGRAM DAILY;
     Route: 048
     Dates: start: 20121227, end: 20121227
  4. MODIODAL TABLETS 100MG [Suspect]
     Dosage: 300 MILLIGRAM DAILY;
     Route: 048
     Dates: start: 20130122

REACTIONS (9)
  - Overdose [Recovered/Resolved]
  - Suicide attempt [Recovered/Resolved]
  - Hallucination [Recovered/Resolved]
  - Delusion [Recovered/Resolved]
  - Rhabdomyolysis [Unknown]
  - Carbon monoxide poisoning [Unknown]
  - Depression [Unknown]
  - Feeling abnormal [Unknown]
  - Hepatic steatosis [Unknown]
